FAERS Safety Report 24007994 (Version 2)
Quarter: 2024Q3

REPORT INFORMATION
  Report Type: Spontaneous
  Country: MW (occurrence: MW)
  Receive Date: 20240625
  Receipt Date: 20240712
  Transmission Date: 20241016
  Serious: Yes (Death, Other)
  Sender: NOVARTIS
  Company Number: MW-002147023-NVSC2024MW131264

PATIENT
  Age: 26 Year
  Sex: Male
  Weight: 45 kg

DRUGS (5)
  1. GLIVEC [Suspect]
     Active Substance: IMATINIB MESYLATE
     Indication: Chronic myeloid leukaemia
     Dosage: 400 MG, (4 X 100MG)
     Route: 065
  2. GLIVEC [Suspect]
     Active Substance: IMATINIB MESYLATE
     Dosage: 200 MG, QD
     Route: 048
     Dates: start: 20240430, end: 20240520
  3. NILOTINIB [Suspect]
     Active Substance: NILOTINIB
     Indication: Product used for unknown indication
     Dosage: 400 MG, BID
     Route: 048
     Dates: start: 20240521, end: 20240525
  4. FLUCONAZOLE [Concomitant]
     Active Substance: FLUCONAZOLE
     Indication: Fungaemia
     Dosage: 200 MG, QD
     Route: 065
     Dates: start: 20240520, end: 20240525
  5. ACYCLOVIR [Concomitant]
     Active Substance: ACYCLOVIR
     Indication: Viraemia
     Dosage: 400 MG, Q8H
     Route: 048
     Dates: start: 20240520, end: 20240525

REACTIONS (11)
  - Chronic myeloid leukaemia [Fatal]
  - Sepsis [Fatal]
  - Death [Fatal]
  - Pancytopenia [Unknown]
  - Thrombocytopenia [Unknown]
  - Haemorrhage [Unknown]
  - Lower respiratory tract infection [Unknown]
  - Malaise [Unknown]
  - Splenomegaly [Unknown]
  - Leukocytosis [Unknown]
  - Anaemia [Unknown]

NARRATIVE: CASE EVENT DATE: 20240525
